FAERS Safety Report 22138615 (Version 1)
Quarter: 2023Q1

REPORT INFORMATION
  Report Type: Spontaneous
  Country: DE (occurrence: DE)
  Receive Date: 20230326
  Receipt Date: 20230326
  Transmission Date: 20230418
  Serious: Yes (Other)
  Sender: FDA-Public Use
  Company Number: None

PATIENT
  Age: 25 Year
  Sex: Female
  Weight: 84 kg

DRUGS (1)
  1. CLINDAMYCIN HYDROCHLORIDE [Suspect]
     Active Substance: CLINDAMYCIN HYDROCHLORIDE
     Indication: Tonsillitis bacterial
     Dosage: 600 MG, Q8H (3X TAGLICH 1 TABLETTE EINNAHME BIS 16 MAR 2023 GEPLANT)
     Route: 048
     Dates: start: 20230310

REACTIONS (4)
  - Herpes ophthalmic [Not Recovered/Not Resolved]
  - Dyschezia [Unknown]
  - Taste disorder [Unknown]
  - Diarrhoea [Unknown]

NARRATIVE: CASE EVENT DATE: 20230311
